FAERS Safety Report 9415294 (Version 1)
Quarter: 2013Q3

REPORT INFORMATION
  Report Type: Spontaneous
  Country: IT (occurrence: IT)
  Receive Date: 20130723
  Receipt Date: 20130723
  Transmission Date: 20140515
  Serious: Yes (Life-Threatening, Hospitalization, Other)
  Sender: FDA-Public Use
  Company Number: IT-ROXANE LABORATORIES, INC.-2013-RO-01187RO

PATIENT
  Age: 41 Year
  Sex: Female

DRUGS (1)
  1. METHADONE [Suspect]
     Indication: DRUG WITHDRAWAL MAINTENANCE THERAPY
     Dosage: 100 MG

REACTIONS (9)
  - Cardiac failure [Recovered/Resolved]
  - Stress cardiomyopathy [Recovered/Resolved]
  - Respiratory distress [Recovered/Resolved]
  - Withdrawal syndrome [Recovered/Resolved]
  - Meningitis pneumococcal [Recovered/Resolved]
  - Electrocardiogram QT prolonged [Recovered/Resolved]
  - Intervertebral discitis [Recovered/Resolved]
  - Quadriparesis [Recovered/Resolved]
  - Depressed level of consciousness [Recovered/Resolved]
